FAERS Safety Report 9032392 (Version 2)
Quarter: 2013Q1

REPORT INFORMATION
  Report Type: Spontaneous
  Country: TR (occurrence: None)
  Receive Date: 20130108
  Receipt Date: 20130129
  Transmission Date: 20140127
  Serious: Yes (Life-Threatening)
  Sender: FDA-Public Use
  Company Number: TR-2012-4285

PATIENT
  Age: 63 Year
  Sex: Male
  Weight: 65 kg

DRUGS (2)
  1. NAVELBINE (VINORELBINE TARTRATE) INFUSION [Suspect]
     Indication: NON-SMALL CELL LUNG CANCER
     Dosage: 40 DF, INTRAVENOUS
     Route: 042
     Dates: start: 20121204, end: 20121204
  2. GRANISETRON HYDROCHLORIDE [Concomitant]

REACTIONS (6)
  - Bronchospasm [None]
  - Dysphonia [None]
  - Headache [None]
  - Dyspnoea [None]
  - Chest pain [None]
  - Back pain [None]
